FAERS Safety Report 14293799 (Version 1)
Quarter: 2017Q4

REPORT INFORMATION
  Report Type: Spontaneous
  Country: GB (occurrence: GB)
  Receive Date: 20171216
  Receipt Date: 20171216
  Transmission Date: 20180321
  Serious: Yes (Other)
  Sender: FDA-Public Use
  Company Number: GB-TORRENT-00015840

PATIENT
  Age: 41 Year
  Sex: Female
  Weight: 80 kg

DRUGS (1)
  1. DULOXETINE. [Suspect]
     Active Substance: DULOXETINE
     Indication: FIBROMYALGIA
     Dosage: 60-20MG
     Route: 048
     Dates: start: 20140601, end: 20171104

REACTIONS (4)
  - Irritability [Recovering/Resolving]
  - Headache [Recovering/Resolving]
  - Depressed mood [Recovering/Resolving]
  - Withdrawal syndrome [Unknown]
